FAERS Safety Report 21567986 (Version 3)
Quarter: 2022Q4

REPORT INFORMATION
  Report Type: Spontaneous
  Country: TW (occurrence: TW)
  Receive Date: 20221108
  Receipt Date: 20221222
  Transmission Date: 20230113
  Serious: Yes (Life-Threatening, Hospitalization, Other)
  Sender: FDA-Public Use
  Company Number: TW-BRACCO-2022TW04768

PATIENT
  Age: 49 Year
  Sex: Female

DRUGS (1)
  1. MULTIHANCE [Suspect]
     Active Substance: GADOBENATE DIMEGLUMINE
     Indication: Magnetic resonance imaging head
     Dosage: 15 ML, SINGLE
     Route: 042
     Dates: start: 20221026, end: 20221026

REACTIONS (3)
  - Anaphylactic shock [Unknown]
  - Coma [Unknown]
  - Coronary artery thrombosis [Recovered/Resolved]

NARRATIVE: CASE EVENT DATE: 20221026
